FAERS Safety Report 10213877 (Version 1)
Quarter: 2014Q2

REPORT INFORMATION
  Report Type: Spontaneous
  Country: US (occurrence: None)
  Receive Date: 20140530
  Receipt Date: 20140530
  Transmission Date: 20141212
  Serious: Yes (Other)
  Sender: FDA-Public Use
  Company Number: 2014AP003142

PATIENT
  Sex: 0

DRUGS (2)
  1. ALENDRONATE SODIUM [Suspect]
     Indication: OSTEOPOROSIS
     Dates: end: 201202
  2. ALENDRONATE SODIUM [Suspect]
     Indication: OSTEOPENIA
     Dates: end: 201202

REACTIONS (5)
  - Femur fracture [None]
  - Pain [None]
  - Injury [None]
  - Bone disorder [None]
  - Physical disability [None]
